FAERS Safety Report 4791626-4 (Version None)
Quarter: 2005Q4

REPORT INFORMATION
  Report Type: 
  Country: None (occurrence: None)
  Receive Date: 20051007
  Receipt Date: 20050804
  Transmission Date: 20060501
  Serious: No
  Sender: FDA-Public Use
  Company Number: US-BRISTOL-MYERS SQUIBB COMPANY-13064027

PATIENT
  Age: 59 Year
  Sex: Female
  Weight: 54 kg

DRUGS (5)
  1. AVAPRO [Suspect]
     Indication: HYPERTENSION
     Dates: start: 19950101
  2. CARDIZEM [Suspect]
     Indication: HYPERTENSION
     Dosage: INITIATED AT 30 MG TID
     Route: 048
     Dates: start: 19820101
  3. INDERAL [Concomitant]
     Dates: end: 19820101
  4. LOPRESSOR [Concomitant]
  5. CATAPRES [Concomitant]

REACTIONS (3)
  - CHEST PAIN [None]
  - DIARRHOEA [None]
  - VOMITING [None]
